FAERS Safety Report 14350890 (Version 1)
Quarter: 2018Q1

REPORT INFORMATION
  Report Type: Spontaneous
  Country: US (occurrence: US)
  Receive Date: 20180103
  Receipt Date: 20180103
  Transmission Date: 20180509
  Serious: No
  Sender: FDA-Public Use
  Company Number: None

PATIENT
  Age: 72 Year
  Sex: Male

DRUGS (1)
  1. CAPECITABINE TAB 500MG [Suspect]
     Active Substance: CAPECITABINE
     Dosage: 3 TABS IN AM AND 2 TABS BID ORAL
     Route: 048
     Dates: start: 20171211

REACTIONS (2)
  - Drug dose omission [None]
  - Product distribution issue [None]

NARRATIVE: CASE EVENT DATE: 20180102
